FAERS Safety Report 9681314 (Version 1)
Quarter: 2013Q4

REPORT INFORMATION
  Report Type: Spontaneous
  Country: US (occurrence: None)
  Receive Date: 20131108
  Receipt Date: 20131108
  Transmission Date: 20140711
  Serious: Yes (Hospitalization)
  Sender: FDA-Public Use
  Company Number: None

PATIENT
  Age: 43 Year
  Sex: Female
  Weight: 60.33 kg

DRUGS (1)
  1. CIPROFLOXICIN [Suspect]
     Indication: URINARY TRACT INFECTION
     Dosage: 1 TWICE DAILY TAKEN BY MOUTH
     Route: 048
     Dates: start: 20131104, end: 20131106

REACTIONS (8)
  - Anxiety [None]
  - Agitation [None]
  - Chills [None]
  - Headache [None]
  - Confusional state [None]
  - Visual impairment [None]
  - Photopsia [None]
  - Impaired driving ability [None]
